FAERS Safety Report 15153548 (Version 1)
Quarter: 2018Q3

REPORT INFORMATION
  Report Type: Spontaneous
  Country: DE (occurrence: DE)
  Receive Date: 20180717
  Receipt Date: 20180717
  Transmission Date: 20181010
  Serious: Yes (Other)
  Sender: FDA-Public Use
  Company Number: DE-BAYER-2018-130475

PATIENT
  Sex: Female

DRUGS (2)
  1. MIRENA [Suspect]
     Active Substance: LEVONORGESTREL
     Dosage: 20 MCG/24HR, CONT
     Route: 015
     Dates: start: 20180118, end: 2018
  2. L?THYROXIN [Interacting]
     Active Substance: LEVOTHYROXINE SODIUM
     Indication: HYPOTHYROIDISM
     Dosage: DAILY DOSE 75 ?G
     Route: 048

REACTIONS (4)
  - Palpitations [Recovered/Resolved]
  - Paraesthesia [Recovered/Resolved]
  - Extrasystoles [None]
  - Blood thyroid stimulating hormone increased [Recovered/Resolved]
